FAERS Safety Report 13445572 (Version 1)
Quarter: 2017Q2

REPORT INFORMATION
  Report Type: Report from Study
  Country: US (occurrence: US)
  Receive Date: 20170415
  Receipt Date: 20170415
  Transmission Date: 20170830
  Serious: Yes (Hospitalization, Other)
  Sender: FDA-Public Use
  Company Number: US-ROCHE-1904938

PATIENT
  Sex: Female

DRUGS (2)
  1. ZELBORAF [Suspect]
     Active Substance: VEMURAFENIB
     Indication: MALIGNANT MELANOMA
     Route: 065
  2. COTELLIC [Suspect]
     Active Substance: COBIMETINIB
     Indication: MALIGNANT MELANOMA
     Route: 065

REACTIONS (8)
  - Malaise [Unknown]
  - Dehydration [Not Recovered/Not Resolved]
  - Rash [Unknown]
  - Jaundice [Unknown]
  - Kidney infection [Unknown]
  - Drug intolerance [Unknown]
  - Incoherent [Not Recovered/Not Resolved]
  - Hepatic enzyme abnormal [Unknown]
